FAERS Safety Report 10888981 (Version 2)
Quarter: 2015Q2

REPORT INFORMATION
  Report Type: Spontaneous
  Country: JP (occurrence: JP)
  Receive Date: 20150305
  Receipt Date: 20150505
  Transmission Date: 20150821
  Serious: Yes (Death, Other)
  Sender: FDA-Public Use
  Company Number: JP-TEVA-544689ISR

PATIENT
  Age: 76 Year
  Sex: Female
  Weight: 43 kg

DRUGS (16)
  1. TRAVELMIN [Concomitant]
     Active Substance: DIMENHYDRINATE
     Indication: NAUSEA
     Route: 048
     Dates: start: 20141004, end: 20141011
  2. FENTOS [Concomitant]
     Active Substance: FENTANYL
     Dosage: 2 MILLIGRAM DAILY;
     Route: 062
     Dates: start: 20141010, end: 20141015
  3. E-FEN BUCCAL [Suspect]
     Active Substance: FENTANYL CITRATE
     Dosage: 200MCG - 800MCG
     Route: 002
     Dates: start: 20141015, end: 20141017
  4. URSO [Concomitant]
     Active Substance: URSODIOL
     Indication: HEPATIC FUNCTION ABNORMAL
     Dosage: 600 MILLIGRAM DAILY;
     Route: 048
     Dates: start: 20141004, end: 20141011
  5. FENTOS [Concomitant]
     Active Substance: FENTANYL
     Indication: CANCER PAIN
     Dosage: 1 MILLIGRAM DAILY;
     Route: 062
     Dates: start: 20141006, end: 20141009
  6. E-FEN BUCCAL [Suspect]
     Active Substance: FENTANYL CITRATE
     Dosage: 100 MCG - 300MCG
     Route: 002
     Dates: start: 20141012, end: 20141015
  7. E-FEN BUCCAL [Suspect]
     Active Substance: FENTANYL CITRATE
     Indication: BREAKTHROUGH PAIN
     Dosage: 50 MCG- 200MCG
     Route: 002
     Dates: start: 20141004, end: 20141012
  8. TRAMAL [Concomitant]
     Active Substance: TRAMADOL
     Indication: CANCER PAIN
     Dosage: 75 MILLIGRAM DAILY;
     Route: 048
     Dates: start: 20141004, end: 20141005
  9. AMITIZA [Concomitant]
     Active Substance: LUBIPROSTONE
     Indication: CONSTIPATION PROPHYLAXIS
     Dosage: 48 MICROGRAM DAILY;
     Route: 048
     Dates: start: 20141004, end: 20141011
  10. LOXOPROFEN [Concomitant]
     Active Substance: LOXOPROFEN
     Route: 048
     Dates: start: 20141004, end: 20141004
  11. E-FEN BUCCAL [Suspect]
     Active Substance: FENTANYL CITRATE
     Dosage: 200MCG
     Route: 002
     Dates: start: 20141018, end: 20141020
  12. LANSOPRAZOLE. [Concomitant]
     Active Substance: LANSOPRAZOLE
     Indication: PROPHYLAXIS AGAINST GASTROINTESTINAL ULCER
     Dosage: 30 MILLIGRAM DAILY;
     Route: 048
     Dates: start: 20141004, end: 20141018
  13. LOXOPROFEN [Concomitant]
     Active Substance: LOXOPROFEN
     Route: 048
     Dates: start: 20141005, end: 20141011
  14. FENTOS [Concomitant]
     Active Substance: FENTANYL
     Dosage: 4 MILLIGRAM DAILY;
     Route: 062
     Dates: start: 20141016, end: 20141020
  15. VERAPAMIL HCL [Concomitant]
     Active Substance: VERAPAMIL HYDROCHLORIDE
     Indication: BREAKTHROUGH PAIN
     Route: 054
     Dates: start: 20141018, end: 20141020
  16. LOXOPROFEN [Concomitant]
     Active Substance: LOXOPROFEN
     Indication: CANCER PAIN
     Route: 048
     Dates: start: 20140827

REACTIONS (1)
  - Colorectal cancer [Fatal]

NARRATIVE: CASE EVENT DATE: 20141020
